FAERS Safety Report 9342304 (Version 1)
Quarter: 2013Q2

REPORT INFORMATION
  Report Type: Report from Study
  Country: US (occurrence: US)
  Receive Date: 20130611
  Receipt Date: 20130611
  Transmission Date: 20140414
  Serious: Yes (Other)
  Sender: FDA-Public Use
  Company Number: PHEH2012US019255

PATIENT
  Age: 76 Year
  Sex: Female

DRUGS (4)
  1. AFINITOR [Suspect]
     Indication: CARCINOID TUMOUR
     Dosage: 10 MG, DAILY
     Route: 048
     Dates: start: 201206
  2. AFINITOR [Suspect]
     Dosage: 5 MG, QD
     Route: 048
  3. AFINITOR [Suspect]
     Dosage: 5 MG, QD
     Route: 048
  4. AFINITOR [Suspect]
     Dosage: 2.5 MG, QD
     Route: 048

REACTIONS (3)
  - Hepatic lesion [Unknown]
  - Platelet count decreased [Unknown]
  - General physical health deterioration [Unknown]
